FAERS Safety Report 15530679 (Version 7)
Quarter: 2020Q2

REPORT INFORMATION
  Report Type: Report from Study
  Country: US (occurrence: US)
  Receive Date: 20181018
  Receipt Date: 20200610
  Transmission Date: 20200713
  Serious: Yes (Death, Life-Threatening, Hospitalization, Other)
  Sender: FDA-Public Use
  Company Number: US-ACTELION-A-NJ2017-154231

PATIENT
  Age: 78 Year
  Sex: Female
  Weight: 103.4 kg

DRUGS (3)
  1. ELIQUIS [Concomitant]
     Active Substance: APIXABAN
  2. OPSUMIT [Suspect]
     Active Substance: MACITENTAN
     Indication: PORTOPULMONARY HYPERTENSION
     Dosage: 10 MG, QD
     Route: 048
     Dates: start: 20161117, end: 20181015
  3. SILDENAFIL CITRATE. [Concomitant]
     Active Substance: SILDENAFIL CITRATE

REACTIONS (26)
  - Oedema peripheral [Fatal]
  - Dialysis related complication [Recovered/Resolved]
  - Pain in extremity [Recovered/Resolved]
  - Hypotension [Recovered/Resolved]
  - Pneumonia [Unknown]
  - Pulmonary hypertension [Unknown]
  - Malaise [Recovered/Resolved]
  - Hospitalisation [Unknown]
  - Varicophlebitis [Recovered/Resolved]
  - Unresponsive to stimuli [Recovered/Resolved]
  - Cough [Recovered/Resolved]
  - Blood glucose decreased [Recovered/Resolved]
  - Dyspnoea [Fatal]
  - Brain natriuretic peptide increased [Recovering/Resolving]
  - Acute left ventricular failure [Recovered/Resolved]
  - Peripheral swelling [Recovered/Resolved]
  - Weight increased [Fatal]
  - Atrial fibrillation [Recovered/Resolved]
  - End stage renal disease [Fatal]
  - Fluid overload [Unknown]
  - Bronchitis bacterial [Recovered/Resolved]
  - Condition aggravated [Unknown]
  - Hypoglycaemia [Recovered/Resolved]
  - Cardiac failure congestive [Fatal]
  - Swelling [Fatal]
  - Hypoxia [Recovered/Resolved]

NARRATIVE: CASE EVENT DATE: 201704
